FAERS Safety Report 12078115 (Version 1)
Quarter: 2016Q1

REPORT INFORMATION
  Report Type: Report from Study
  Country: FR (occurrence: FR)
  Receive Date: 20160215
  Receipt Date: 20160215
  Transmission Date: 20160526
  Serious: Yes (Hospitalization)
  Sender: FDA-Public Use
  Company Number: FR-ABBVIE-16P-056-1558473-00

PATIENT
  Sex: Female

DRUGS (1)
  1. DUODOPA [Suspect]
     Active Substance: CARBIDOPA\LEVODOPA
     Indication: PRODUCT USED FOR UNKNOWN INDICATION
     Route: 065
     Dates: start: 201510

REACTIONS (4)
  - Humerus fracture [Unknown]
  - Fall [Unknown]
  - Dyskinesia [Unknown]
  - Pain [Unknown]

NARRATIVE: CASE EVENT DATE: 20160208
